FAERS Safety Report 5237919-8 (Version None)
Quarter: 2007Q1

REPORT INFORMATION
  Report Type: 
  Country: None (occurrence: None)
  Receive Date: 20070214
  Receipt Date: 20070205
  Transmission Date: 20070707
  Serious: Yes (Hospitalization)
  Sender: FDA-Public Use
  Company Number: GB-BRISTOL-MYERS SQUIBB COMPANY-13669684

PATIENT
  Age: 46 Year
  Sex: Male

DRUGS (3)
  1. METFORMIN HCL [Suspect]
  2. RAMIPRIL [Concomitant]
  3. ALCOHOL [Concomitant]

REACTIONS (5)
  - COMPARTMENT SYNDROME [None]
  - LACTIC ACIDOSIS [None]
  - OVERDOSE [None]
  - RENAL FAILURE [None]
  - RHABDOMYOLYSIS [None]
